FAERS Safety Report 9981126 (Version 1)
Quarter: 2014Q1

REPORT INFORMATION
  Report Type: Spontaneous
  Country: US (occurrence: US)
  Receive Date: 20140307
  Receipt Date: 20140307
  Transmission Date: 20141002
  Serious: No
  Sender: FDA-Public Use
  Company Number: US-PFIZER INC-2014064921

PATIENT
  Age: 42 Year
  Sex: Female
  Weight: 78.91 kg

DRUGS (3)
  1. PANTOPRAZOLE [Suspect]
     Indication: GASTROOESOPHAGEAL REFLUX DISEASE
     Dosage: 40 MG, 1X/DAY
     Dates: start: 2013, end: 2013
  2. PANTOPRAZOLE [Suspect]
     Indication: GASTRITIS
  3. AZOR [Concomitant]
     Indication: HYPERTENSION
     Dosage: 5/20 MG, 1X/DAY

REACTIONS (1)
  - Drug ineffective [Unknown]
